FAERS Safety Report 8832156 (Version 1)
Quarter: 2012Q4

REPORT INFORMATION
  Report Type: 
  Country: US (occurrence: US)
  Receive Date: 20121009
  Receipt Date: 20121009
  Transmission Date: 20130627
  Serious: No
  Sender: FDA-Public Use
  Company Number: US-BAYER-2012-103015

PATIENT
  Age: 57 Year
  Sex: Female

DRUGS (1)
  1. CLIMARA PRO [Suspect]
     Indication: HOT FLUSH
     Dosage: UNK UNK, OW
     Route: 062
     Dates: start: 201209

REACTIONS (2)
  - Application site erythema [Not Recovered/Not Resolved]
  - Product adhesion issue [None]
